FAERS Safety Report 15530281 (Version 1)
Quarter: 2018Q4

REPORT INFORMATION
  Report Type: Spontaneous
  Country: SK (occurrence: SK)
  Receive Date: 20181018
  Receipt Date: 20181018
  Transmission Date: 20190205
  Serious: Yes (Death, Other)
  Sender: FDA-Public Use
  Company Number: SK-MYLANLABS-2018M1078474

PATIENT
  Age: 62 Year
  Sex: Male

DRUGS (10)
  1. MABTHERA [Suspect]
     Active Substance: RITUXIMAB
     Dosage: 1X700 MG
     Route: 042
  2. CYCLOPHOSPHAMIDE. [Suspect]
     Active Substance: CYCLOPHOSPHAMIDE
     Indication: CHRONIC LYMPHOCYTIC LEUKAEMIA
     Dosage: 900 MG 1X
     Route: 042
     Dates: start: 20060224, end: 20060530
  3. CYCLOPHOSPHAMIDE. [Suspect]
     Active Substance: CYCLOPHOSPHAMIDE
     Dosage: 1200 MG 4X
     Route: 042
     Dates: start: 20120514, end: 20121005
  4. CHLORAMBUCIL [Suspect]
     Active Substance: CHLORAMBUCIL
     Indication: CHRONIC LYMPHOCYTIC LEUKAEMIA
     Dosage: 12 MG, QD
     Route: 048
     Dates: start: 20060620, end: 20120426
  5. CYCLOPHOSPHAMIDE. [Suspect]
     Active Substance: CYCLOPHOSPHAMIDE
     Dosage: 1200 MG 4X
     Route: 042
     Dates: start: 20060224, end: 20060530
  6. PREDNISONE. [Suspect]
     Active Substance: PREDNISONE
     Indication: CHRONIC LYMPHOCYTIC LEUKAEMIA
     Dosage: 120 MG/DAY 5 CONSECUTIVE DAYS
     Route: 048
     Dates: start: 20060224, end: 20060530
  7. VINCRISTINE [Suspect]
     Active Substance: VINCRISTINE
     Indication: CHRONIC LYMPHOCYTIC LEUKAEMIA
     Dosage: 2 MG, 3XW
     Route: 042
     Dates: start: 20060224, end: 20060530
  8. PREDNISONE. [Suspect]
     Active Substance: PREDNISONE
     Dosage: 100 MG/DAY 5 CONSECUTIVE DAYS
     Route: 048
     Dates: start: 20120514, end: 20121005
  9. VINCRISTINE [Suspect]
     Active Substance: VINCRISTINE
     Indication: DISEASE PROGRESSION
     Dosage: 2 MG, 3XW
     Route: 042
     Dates: start: 20120514, end: 20121005
  10. MABTHERA [Suspect]
     Active Substance: RITUXIMAB
     Indication: CHRONIC LYMPHOCYTIC LEUKAEMIA
     Dosage: 4X900 MG
     Route: 042
     Dates: start: 20120605, end: 20121024

REACTIONS (5)
  - Bronchitis [Recovered/Resolved]
  - Progressive multifocal leukoencephalopathy [Fatal]
  - Cerebrovascular accident [Recovered/Resolved with Sequelae]
  - JC virus infection [Unknown]
  - Pneumonia bacterial [Fatal]
